FAERS Safety Report 8365804-1 (Version None)
Quarter: 2012Q2

REPORT INFORMATION
  Report Type: 
  Country: None (occurrence: None)
  Receive Date: 20120517
  Receipt Date: 20120508
  Transmission Date: 20120825
  Serious: Yes (Other)
  Sender: FDA-Public Use
  Company Number: US-AMGEN-USASP2012024665

PATIENT
  Age: 45 Year
  Sex: Female

DRUGS (2)
  1. ENBREL [Suspect]
     Indication: PSORIATIC ARTHROPATHY
     Dosage: 50 MG, QWK
     Dates: start: 20120102
  2. METHOTREXATE [Concomitant]
     Dosage: UNK
     Dates: start: 20110801

REACTIONS (8)
  - PAIN [None]
  - OPTIC DISC DRUSEN [None]
  - VISUAL IMPAIRMENT [None]
  - MUSCULOSKELETAL STIFFNESS [None]
  - FALL [None]
  - DRUG INEFFECTIVE [None]
  - FATIGUE [None]
  - INJECTION SITE PAIN [None]
